FAERS Safety Report 9060073 (Version 2)
Quarter: 2013Q2

REPORT INFORMATION
  Report Type: Spontaneous
  Country: US (occurrence: US)
  Receive Date: 20130212
  Receipt Date: 20130401
  Transmission Date: 20140414
  Serious: Yes (Other)
  Sender: FDA-Public Use
  Company Number: US-JNJFOC-20130200396

PATIENT
  Age: 76 Year
  Sex: Male

DRUGS (2)
  1. XARELTO [Suspect]
     Indication: DEEP VEIN THROMBOSIS
     Route: 048
     Dates: start: 201212, end: 201212
  2. XARELTO [Suspect]
     Indication: DEEP VEIN THROMBOSIS
     Route: 048
     Dates: start: 20121227

REACTIONS (5)
  - Surgery [Unknown]
  - Diverticulitis [Recovering/Resolving]
  - Deep vein thrombosis [Unknown]
  - Chondrocalcinosis pyrophosphate [Unknown]
  - Drug dose omission [Unknown]
